FAERS Safety Report 25165981 (Version 1)
Quarter: 2025Q2

REPORT INFORMATION
  Report Type: Spontaneous
  Country: CA (occurrence: CA)
  Receive Date: 20250407
  Receipt Date: 20250407
  Transmission Date: 20250717
  Serious: Yes (Other)
  Sender: GILEAD
  Company Number: CA-GILEAD-2025-0709452

PATIENT
  Age: 83 Year
  Sex: Male

DRUGS (3)
  1. BIKTARVY [Suspect]
     Active Substance: BICTEGRAVIR SODIUM\EMTRICITABINE\TENOFOVIR ALAFENAMIDE FUMARATE
     Indication: HIV infection
     Route: 065
  2. ACTEMRA [Concomitant]
     Active Substance: TOCILIZUMAB
     Indication: Arthritis
     Dosage: 162 MG, Q2WK
  3. AZT [Concomitant]
     Active Substance: ZIDOVUDINE

REACTIONS (2)
  - Neuropathy peripheral [Not Recovered/Not Resolved]
  - Arthritis [Unknown]
